FAERS Safety Report 11735871 (Version 1)
Quarter: 2015Q4

REPORT INFORMATION
  Report Type: Spontaneous
  Country: US (occurrence: US)
  Receive Date: 20151110
  Receipt Date: 20151110
  Transmission Date: 20160304
  Serious: No
  Sender: FDA-Public Use
  Company Number: US-ELI_LILLY_AND_COMPANY-US201112004244

PATIENT
  Age: 67 Year
  Sex: Female

DRUGS (5)
  1. ANABOLIC STEROIDS [Concomitant]
     Active Substance: UNSPECIFIED INGREDIENT
  2. FORTEO [Suspect]
     Active Substance: TERIPARATIDE
     Indication: OSTEOPOROSIS
     Dosage: 20 UG, QD
     Dates: start: 20111202, end: 20111205
  3. FORTEO [Suspect]
     Active Substance: TERIPARATIDE
     Dosage: 20 UG, QD
     Dates: start: 20111212
  4. FORTEO [Suspect]
     Active Substance: TERIPARATIDE
     Dosage: 20 UG, QD
  5. FORTEO [Suspect]
     Active Substance: TERIPARATIDE
     Dosage: 20 UG, QD

REACTIONS (9)
  - Injection site pruritus [Recovering/Resolving]
  - Underdose [Unknown]
  - Injection site pain [Unknown]
  - Pain in extremity [Unknown]
  - Injection site erythema [Not Recovered/Not Resolved]
  - Musculoskeletal stiffness [Unknown]
  - Injection site rash [Recovering/Resolving]
  - Injection site discomfort [Unknown]
  - Arthralgia [Unknown]

NARRATIVE: CASE EVENT DATE: 20111205
